FAERS Safety Report 6010787-2 (Version None)
Quarter: 2008Q4

REPORT INFORMATION
  Report Type: 
  Country: None (occurrence: None)
  Receive Date: 20081218
  Receipt Date: 20081209
  Transmission Date: 20090506
  Serious: Yes (Hospitalization)
  Sender: FDA-Public Use
  Company Number: PHHY2008IE26637

PATIENT
  Sex: Male

DRUGS (1)
  1. CLOZARIL [Suspect]
     Indication: SCHIZOPHRENIA
     Dosage: UNK
     Dates: start: 19950918

REACTIONS (6)
  - ABSCESS [None]
  - ABSCESS JAW [None]
  - CELLULITIS [None]
  - HYPERSENSITIVITY [None]
  - INFECTION [None]
  - OSTEITIS [None]
